FAERS Safety Report 10904171 (Version 3)
Quarter: 2015Q2

REPORT INFORMATION
  Report Type: Spontaneous
  Country: SE (occurrence: SE)
  Receive Date: 20150311
  Receipt Date: 20150421
  Transmission Date: 20150821
  Serious: Yes (Other)
  Sender: FDA-Public Use
  Company Number: SE-JNJFOC-20150220728

PATIENT
  Sex: Male

DRUGS (2)
  1. ROGAINE FORTE [Suspect]
     Active Substance: MINOXIDIL
     Route: 061
  2. ROGAINE FORTE [Suspect]
     Active Substance: MINOXIDIL
     Indication: ALOPECIA
     Route: 061
     Dates: start: 20150219, end: 20150221

REACTIONS (4)
  - Vasodilatation [Recovering/Resolving]
  - Pruritus [Recovering/Resolving]
  - Urticaria [Recovering/Resolving]
  - Skin swelling [Recovering/Resolving]
